FAERS Safety Report 13836208 (Version 2)
Quarter: 2017Q4

REPORT INFORMATION
  Report Type: Spontaneous
  Country: US (occurrence: US)
  Receive Date: 20170804
  Receipt Date: 20171222
  Transmission Date: 20180320
  Serious: Yes (Hospitalization)
  Sender: FDA-Public Use
  Company Number: US-ABBVIE-17P-163-2062154-00

PATIENT
  Age: 58 Year
  Sex: Male

DRUGS (15)
  1. VALPROIC ACID. [Interacting]
     Active Substance: VALPROIC ACID
     Route: 048
  2. LISINOPRIL. [Concomitant]
     Active Substance: LISINOPRIL
     Indication: PRODUCT USED FOR UNKNOWN INDICATION
  3. VITAMIN B6 [Concomitant]
     Active Substance: PYRIDOXINE HYDROCHLORIDE
     Indication: PRODUCT USED FOR UNKNOWN INDICATION
  4. VALPROIC ACID. [Interacting]
     Active Substance: VALPROIC ACID
     Route: 048
  5. VALPROIC ACID. [Interacting]
     Active Substance: VALPROIC ACID
     Route: 048
  6. OLANZAPINE. [Interacting]
     Active Substance: OLANZAPINE
     Route: 048
  7. OLANZAPINE. [Interacting]
     Active Substance: OLANZAPINE
     Route: 048
  8. VALPROIC ACID. [Interacting]
     Active Substance: VALPROIC ACID
     Indication: MANIA
     Route: 048
  9. RIFAMPICIN [Interacting]
     Active Substance: RIFAMPIN
     Indication: LATENT TUBERCULOSIS
     Route: 048
  10. OLANZAPINE. [Interacting]
     Active Substance: OLANZAPINE
     Indication: MANIA
     Dosage: AT BEDTIME
     Route: 048
  11. OLANZAPINE. [Interacting]
     Active Substance: OLANZAPINE
     Route: 048
  12. ISONIAZID. [Concomitant]
     Active Substance: ISONIAZID
     Indication: PRODUCT USED FOR UNKNOWN INDICATION
  13. METFORMIN [Concomitant]
     Active Substance: METFORMIN HYDROCHLORIDE
     Indication: PRODUCT USED FOR UNKNOWN INDICATION
  14. VALPROIC ACID. [Suspect]
     Active Substance: VALPROIC ACID
     Indication: MANIA
     Route: 048
  15. VALPROIC ACID. [Interacting]
     Active Substance: VALPROIC ACID
     Route: 048

REACTIONS (18)
  - Drug interaction [Recovered/Resolved]
  - Mania [Recovered/Resolved]
  - Abnormal behaviour [Recovered/Resolved]
  - Flight of ideas [Recovered/Resolved]
  - Energy increased [Recovered/Resolved]
  - Thinking abnormal [Recovered/Resolved]
  - Agitation [Recovered/Resolved]
  - Drug level decreased [Recovered/Resolved]
  - Intrusive thoughts [Recovered/Resolved]
  - Affect lability [Recovered/Resolved]
  - Irritability [Recovered/Resolved]
  - Pressure of speech [Recovered/Resolved]
  - Poor quality sleep [Recovered/Resolved]
  - Disinhibition [Recovered/Resolved]
  - Delusion [Recovered/Resolved]
  - Libido increased [Recovered/Resolved]
  - Euphoric mood [Recovered/Resolved]
  - Sedation [Unknown]
